FAERS Safety Report 9408324 (Version 1)
Quarter: 2013Q3

REPORT INFORMATION
  Report Type: Spontaneous
  Country: FR (occurrence: FR)
  Receive Date: 20130718
  Receipt Date: 20130718
  Transmission Date: 20140515
  Serious: Yes (Hospitalization)
  Sender: FDA-Public Use
  Company Number: FR-GLAXOSMITHKLINE-B0906430A

PATIENT
  Age: 53 Year
  Sex: Female

DRUGS (9)
  1. ARIXTRA [Suspect]
     Indication: DEEP VEIN THROMBOSIS
     Dosage: 7.5MG PER DAY
     Route: 058
     Dates: start: 20130523, end: 20130604
  2. COUMADINE [Suspect]
     Indication: THROMBOPHLEBITIS
     Dosage: 1.5MG PER DAY
     Route: 048
     Dates: end: 20130523
  3. LASILIX [Concomitant]
     Indication: HYPERTENSION
     Dosage: 1TAB PER DAY
     Route: 048
  4. VITABACT [Concomitant]
     Indication: CONJUNCTIVITIS ALLERGIC
     Dosage: 1DPH TWICE PER DAY
     Route: 047
  5. XYZALL [Concomitant]
     Indication: CONJUNCTIVITIS ALLERGIC
     Dosage: 1TAB PER DAY
     Route: 048
  6. DAFALGAN [Concomitant]
     Dosage: 2TAB TWICE PER DAY
     Route: 048
  7. GAVISCON [Concomitant]
     Dosage: 1SAC PER DAY
     Route: 048
  8. SOLUPRED [Concomitant]
     Indication: PULMONARY FIBROSIS
     Dosage: 1TAB PER DAY
     Route: 048
  9. OXYGEN THERAPY [Concomitant]

REACTIONS (4)
  - Spontaneous haematoma [Recovered/Resolved]
  - Anaemia [Recovering/Resolving]
  - Rib fracture [Unknown]
  - Osteoporosis [Unknown]
